FAERS Safety Report 5362355-3 (Version None)
Quarter: 2007Q2

REPORT INFORMATION
  Report Type: 
  Country: None (occurrence: None)
  Receive Date: 20070530
  Receipt Date: 20070129
  Transmission Date: 20071010
  Serious: No
  Sender: FDA-Public Use
  Company Number: 2007PV029177

PATIENT
  Sex: Female

DRUGS (2)
  1. BYETTA [Suspect]
     Indication: DRUG USE FOR UNKNOWN INDICATION
     Dosage: 10 MCG;SC ; 5 MCG;SC
     Route: 058
     Dates: start: 20061201, end: 20070125
  2. BYETTA [Suspect]
     Indication: DRUG USE FOR UNKNOWN INDICATION
     Dosage: 10 MCG;SC ; 5 MCG;SC
     Route: 058
     Dates: start: 20070126

REACTIONS (1)
  - BLOOD GLUCOSE INCREASED [None]
